FAERS Safety Report 13023059 (Version 1)
Quarter: 2016Q4

REPORT INFORMATION
  Report Type: Spontaneous
  Country: US (occurrence: US)
  Receive Date: 20161213
  Receipt Date: 20161213
  Transmission Date: 20170207
  Serious: No
  Sender: FDA-Public Use
  Company Number: US-TEVA-639164USA

PATIENT
  Age: 65 Year
  Sex: Female

DRUGS (2)
  1. AZITHROMYCIN ANHYDROUS. [Suspect]
     Active Substance: AZITHROMYCIN ANHYDROUS
     Indication: SINUSITIS
  2. AZITHROMYCIN ANHYDROUS. [Suspect]
     Active Substance: AZITHROMYCIN ANHYDROUS
     Indication: COELIAC DISEASE

REACTIONS (7)
  - Headache [Unknown]
  - Rhinorrhoea [Unknown]
  - Product use issue [Unknown]
  - Chills [Unknown]
  - Lacrimation increased [Unknown]
  - Drug effect decreased [Unknown]
  - Sinus headache [Unknown]

NARRATIVE: CASE EVENT DATE: 20160224
